FAERS Safety Report 21986881 (Version 2)
Quarter: 2023Q2

REPORT INFORMATION
  Report Type: Spontaneous
  Country: US (occurrence: US)
  Receive Date: 20230213
  Receipt Date: 20230518
  Transmission Date: 20230722
  Serious: No
  Sender: FDA-Public Use
  Company Number: US-Emergent Biosolutions-23000029

PATIENT
  Sex: Male

DRUGS (2)
  1. NALOXONE HYDROCHLORIDE [Suspect]
     Active Substance: NALOXONE HYDROCHLORIDE
     Indication: Overdose
     Dosage: UNK
     Route: 065
  2. METHADONE [Suspect]
     Active Substance: METHADONE HYDROCHLORIDE
     Indication: Product used for unknown indication
     Dosage: UNK
     Route: 065

REACTIONS (8)
  - Drug withdrawal syndrome [Recovered/Resolved]
  - Irritability [Recovered/Resolved]
  - Restlessness [Recovered/Resolved]
  - Diarrhoea [Recovered/Resolved]
  - Yawning [Recovered/Resolved]
  - Nervousness [Recovered/Resolved]
  - Chills [Recovered/Resolved]
  - Pain [Recovered/Resolved]
